FAERS Safety Report 8470916-8 (Version None)
Quarter: 2012Q2

REPORT INFORMATION
  Report Type: 
  Country: None (occurrence: None)
  Receive Date: 20120627
  Receipt Date: 20120618
  Transmission Date: 20120825
  Serious: Yes (Hospitalization, Disabling, Other)
  Sender: FDA-Public Use
  Company Number: US-JNJFOC-20120519113

PATIENT
  Sex: Female
  Weight: 70 kg

DRUGS (4)
  1. ERGOCALCIFEROL [Concomitant]
     Indication: OSTEOPENIA
     Dosage: 1000U
     Route: 048
  2. MULTI-VITAMINS [Concomitant]
     Indication: MEDICAL DIET
     Route: 048
  3. AZATHIOPRINE [Concomitant]
     Route: 065
     Dates: start: 20020601, end: 20020801
  4. REMICADE [Suspect]
     Indication: CROHN'S DISEASE
     Route: 042
     Dates: start: 20020627, end: 20120330

REACTIONS (1)
  - LEIOMYOSARCOMA [None]
